FAERS Safety Report 18402831 (Version 1)
Quarter: 2020Q4

REPORT INFORMATION
  Report Type: Spontaneous
  Country: JP (occurrence: JP)
  Receive Date: 20201020
  Receipt Date: 20201020
  Transmission Date: 20210114
  Serious: Yes (Other)
  Sender: FDA-Public Use
  Company Number: JP-GLAXOSMITHKLINE-JP2020204377

PATIENT
  Age: 5 Decade
  Sex: Female

DRUGS (4)
  1. IMIGRAN STATDOSE [Suspect]
     Active Substance: SUMATRIPTAN
  2. IMIGRAN STATDOSE [Suspect]
     Active Substance: SUMATRIPTAN
     Indication: MIGRAINE
     Dosage: UNK
     Route: 058
  3. IMIGRAN [Suspect]
     Active Substance: SUMATRIPTAN SUCCINATE
     Indication: MIGRAINE
     Dosage: UNK
     Route: 045
  4. IMIGRAN-T [Suspect]
     Active Substance: SUMATRIPTAN SUCCINATE
     Indication: MIGRAINE
     Dosage: UNK
     Route: 048

REACTIONS (4)
  - Mucosal roughness [Unknown]
  - Nausea [Unknown]
  - Discomfort [Unknown]
  - Internal haemorrhage [Unknown]
